FAERS Safety Report 10271029 (Version 3)
Quarter: 2015Q1

REPORT INFORMATION
  Report Type: Spontaneous
  Country: GB (occurrence: GB)
  Receive Date: 20140701
  Receipt Date: 20150122
  Transmission Date: 20150720
  Serious: Yes (Life-Threatening)
  Sender: FDA-Public Use
  Company Number: GB-TEVA-179624ISR

PATIENT
  Age: 47 Year
  Sex: Male

DRUGS (11)
  1. LINEZOLID. [Interacting]
     Active Substance: LINEZOLID
     Dosage: 1200 MILLIGRAM DAILY;
     Route: 042
     Dates: start: 20041017, end: 20041020
  2. ATENOLOL. [Interacting]
     Active Substance: ATENOLOL
     Route: 048
  3. RIFAMPICIN [Interacting]
     Active Substance: RIFAMPIN
     Route: 042
  4. HALOPERIDOL. [Interacting]
     Active Substance: HALOPERIDOL
  5. OMEPRAZOLE. [Suspect]
     Active Substance: OMEPRAZOLE
     Route: 048
  6. AMISULPRIDE [Interacting]
     Active Substance: AMISULPRIDE
     Route: 048
  7. DOXAZOSIN [Interacting]
     Active Substance: DOXAZOSIN\DOXAZOSIN MESYLATE
     Route: 048
  8. PROCYCLIDINE [Interacting]
     Active Substance: PROCYCLIDINE
     Route: 048
  9. ZOPICLONE [Interacting]
     Active Substance: ZOPICLONE
  10. FENTANYL. [Interacting]
     Active Substance: FENTANYL
     Route: 042
  11. PANTOPRAZOLE [Interacting]
     Active Substance: PANTOPRAZOLE SODIUM

REACTIONS (2)
  - Drug interaction [Recovered/Resolved]
  - Hypertension [Recovered/Resolved]

NARRATIVE: CASE EVENT DATE: 20041018
